FAERS Safety Report 9676602 (Version 5)
Quarter: 2014Q1

REPORT INFORMATION
  Report Type: Spontaneous
  Country: JP (occurrence: JP)
  Receive Date: 20131107
  Receipt Date: 20140307
  Transmission Date: 20141002
  Serious: Yes (Hospitalization)
  Sender: FDA-Public Use
  Company Number: JP-SA-2013SA111748

PATIENT
  Age: 72 Year
  Sex: Female
  Weight: 44 kg

DRUGS (5)
  1. LANTUS [Suspect]
     Indication: TYPE 1 DIABETES MELLITUS
     Dosage: DOSE: 5-7 U
     Route: 058
     Dates: start: 20131003, end: 20131024
  2. LANTUS [Suspect]
     Indication: TYPE 1 DIABETES MELLITUS
     Route: 058
     Dates: end: 20130822
  3. LANTUS [Suspect]
     Indication: TYPE 1 DIABETES MELLITUS
     Route: 058
     Dates: start: 20130908, end: 20131002
  4. NOVORAPID [Suspect]
     Indication: TYPE 1 DIABETES MELLITUS
     Dosage: DOSE: 3-5 U
     Route: 058
     Dates: end: 20131024
  5. TRESIBA [Concomitant]
     Indication: TYPE 1 DIABETES MELLITUS
     Dates: start: 20130823, end: 20130907

REACTIONS (2)
  - Pyrexia [Recovering/Resolving]
  - Anti-insulin antibody positive [Unknown]
